FAERS Safety Report 7052139-2 (Version None)
Quarter: 2010Q4

REPORT INFORMATION
  Report Type: 
  Country: None (occurrence: None)
  Receive Date: 20101019
  Receipt Date: 20101013
  Transmission Date: 20110411
  Serious: Yes (Death)
  Sender: FDA-Public Use
  Company Number: PHHY2010US69420

PATIENT
  Sex: Female

DRUGS (5)
  1. FEMARA [Suspect]
     Dosage: 2.5 MG, QD
     Route: 048
  2. BUMEX [Concomitant]
     Dosage: 1 MG, QD
     Route: 048
  3. SPIRONOLACTONE [Concomitant]
     Dosage: 100 MG, BID
     Route: 048
  4. DARVOCET-N 100 [Concomitant]
     Indication: PAIN
     Dosage: EVERY 4-6 HOURS AS NEEDED
     Route: 048
  5. PRILOSEC [Concomitant]
     Dosage: 20 MG
     Route: 048

REACTIONS (1)
  - ROAD TRAFFIC ACCIDENT [None]
